FAERS Safety Report 7701766-5 (Version None)
Quarter: 2011Q3

REPORT INFORMATION
  Report Type: 
  Country: None (occurrence: None)
  Receive Date: 20110822
  Receipt Date: 20110812
  Transmission Date: 20111222
  Serious: Yes (Hospitalization, Other)
  Sender: FDA-Public Use
  Company Number: US-BAYER-201038021NA

PATIENT
  Age: 21 Year
  Sex: Female
  Weight: 99.773 kg

DRUGS (5)
  1. VICODIN [Concomitant]
  2. METFORMIN [Concomitant]
     Dosage: UNK
     Dates: start: 20000101
  3. YASMIN [Suspect]
     Indication: CONTRACEPTION
     Route: 048
     Dates: start: 20061201, end: 20070701
  4. YASMIN [Suspect]
     Indication: PROPHYLAXIS
     Route: 048
     Dates: start: 20050701, end: 20060401
  5. YASMIN [Suspect]
     Indication: POLYCYSTIC OVARIES
     Dosage: UNK
     Dates: start: 20030101, end: 20060407

REACTIONS (3)
  - MENTAL DISORDER [None]
  - DEEP VEIN THROMBOSIS [None]
  - DEPRESSION [None]
